FAERS Safety Report 5896520-3 (Version None)
Quarter: 2008Q3

REPORT INFORMATION
  Report Type: 
  Country: None (occurrence: None)
  Receive Date: 20080924
  Receipt Date: 20070808
  Transmission Date: 20090109
  Serious: No
  Sender: FDA-Public Use
  Company Number: US-BAYER-200712130BWH

PATIENT
  Age: 66 Year
  Sex: Male

DRUGS (6)
  1. AVELOX [Suspect]
     Indication: SINUSITIS
     Dosage: TOTAL DAILY DOSE: 400 MG  UNIT DOSE: 400 MG
     Route: 048
  2. STATIN (NOS) [Concomitant]
  3. HIGH BLOOD PRESSURE MEDICATION (NOS) [Concomitant]
  4. LIPITOR [Concomitant]
  5. GLUCOPHAGE [Concomitant]
  6. INSULIN [Concomitant]

REACTIONS (1)
  - HEPATIC ENZYME INCREASED [None]
